FAERS Safety Report 13143964 (Version 1)
Quarter: 2017Q1

REPORT INFORMATION
  Report Type: Spontaneous
  Country: BR (occurrence: BR)
  Receive Date: 20170124
  Receipt Date: 20170124
  Transmission Date: 20170428
  Serious: Yes (Death)
  Sender: FDA-Public Use
  Company Number: PHHY2017BR010262

PATIENT
  Sex: Male
  Weight: 64 kg

DRUGS (1)
  1. DIOVAN [Suspect]
     Active Substance: VALSARTAN
     Indication: HYPERTENSION
     Dosage: 12 DF, QD
     Route: 048

REACTIONS (4)
  - Renal failure [Fatal]
  - Diabetes mellitus [Fatal]
  - Aneurysm [Fatal]
  - Cirrhosis alcoholic [Fatal]
